FAERS Safety Report 18132577 (Version 1)
Quarter: 2020Q3

REPORT INFORMATION
  Report Type: Report from Study
  Country: None (occurrence: US)
  Receive Date: 20200811
  Receipt Date: 20200811
  Transmission Date: 20201103
  Serious: Yes (Other)
  Sender: FDA-Public Use
  Company Number: US-ABBVIE-20P-163-3270369-00

PATIENT
  Sex: Female

DRUGS (2)
  1. IMBRUVICA [Suspect]
     Active Substance: IBRUTINIB
     Route: 048
  2. IMBRUVICA [Suspect]
     Active Substance: IBRUTINIB
     Indication: CHRONIC LYMPHOCYTIC LEUKAEMIA
     Route: 048
     Dates: start: 20180426

REACTIONS (7)
  - Arthropathy [Unknown]
  - Gait disturbance [Unknown]
  - Polyp [Unknown]
  - Tendon disorder [Unknown]
  - Neuroma [Unknown]
  - Hypersomnia [Unknown]
  - Fatigue [Unknown]
